FAERS Safety Report 4348913-3 (Version None)
Quarter: 2004Q1

REPORT INFORMATION
  Report Type: 
  Country: None (occurrence: None)
  Receive Date: 20040325
  Receipt Date: 20040216
  Transmission Date: 20041129
  Serious: No
  Sender: FDA-Public Use
  Company Number: USA031151945

PATIENT
  Age: 82 Year
  Sex: Female

DRUGS (7)
  1. FORTEO [Suspect]
     Indication: OSTEOPOROSIS
     Dates: start: 20031017
  2. HYDROCHLOROTHIAZIDE [Concomitant]
  3. CITRACAL (CALCIUM CITRATE) [Concomitant]
  4. MULTI-VITAMIN [Concomitant]
  5. VITAMIN D [Concomitant]
  6. ASPIRIN [Concomitant]
  7. VITAMIN C [Concomitant]

REACTIONS (10)
  - DIZZINESS [None]
  - EMOTIONAL DISTRESS [None]
  - FEAR [None]
  - HEADACHE [None]
  - HEART RATE INCREASED [None]
  - INJECTION SITE ERYTHEMA [None]
  - INJECTION SITE HAEMORRHAGE [None]
  - LACERATION [None]
  - NERVOUSNESS [None]
  - TREMOR [None]
